FAERS Safety Report 6837375-X (Version None)
Quarter: 2010Q3

REPORT INFORMATION
  Report Type: 
  Country: None (occurrence: None)
  Receive Date: 20100713
  Receipt Date: 20070510
  Transmission Date: 20110219
  Serious: No
  Sender: FDA-Public Use
  Company Number: US-PFIZER INC-2007038719

PATIENT
  Sex: Female
  Weight: 81.6 kg

DRUGS (17)
  1. CHANTIX [Suspect]
     Indication: SMOKING CESSATION THERAPY
     Dates: start: 20070413
  2. WELLBUTRIN [Suspect]
     Indication: SMOKING CESSATION THERAPY
  3. PLAVIX [Concomitant]
  4. CALCIUM [Concomitant]
  5. CENTRUM [Concomitant]
  6. TOPAMAX [Concomitant]
  7. LEXAPRO [Concomitant]
  8. NEXIUM [Concomitant]
  9. ATENOLOL [Concomitant]
  10. KLONOPIN [Concomitant]
     Dosage: 0.5 MG IN THE MORNINGS AND 1 MG AT NIGHT
  11. PRIMIDONE [Concomitant]
  12. GEODON [Concomitant]
  13. ENTOCORT EC [Concomitant]
  14. ZOCOR [Concomitant]
  15. VICODIN [Concomitant]
  16. DITROPAN XL [Concomitant]
  17. LOMOTIL [Concomitant]
     Dosage: 8 EVERY 1 DAYS

REACTIONS (2)
  - DECREASED INTEREST [None]
  - DEPRESSION [None]
